FAERS Safety Report 6874575-7 (Version None)
Quarter: 2010Q2

REPORT INFORMATION
  Report Type: 
  Country: None (occurrence: None)
  Receive Date: 20100609
  Receipt Date: 20090722
  Transmission Date: 20101027
  Serious: No
  Sender: FDA-Public Use
  Company Number: 2009-00935

PATIENT
  Age: 55 Year
  Sex: Female
  Weight: 81.6475 kg

DRUGS (3)
  1. ZICAM EXTREME CONGESTION RELIEF [Suspect]
     Indication: NASOPHARYNGITIS
     Dosage: BID X 3 DAYS
     Dates: start: 20090414, end: 20090417
  2. ORAL STEROID [Concomitant]
  3. NASAL STEROID [Concomitant]

REACTIONS (2)
  - AGEUSIA [None]
  - ANOSMIA [None]
